FAERS Safety Report 7166637-4 (Version None)
Quarter: 2011Q1

REPORT INFORMATION
  Report Type: 
  Country: None (occurrence: None)
  Receive Date: 20101203
  Receipt Date: 20101123
  Transmission Date: 20110831
  Serious: Yes (Hospitalization)
  Sender: FDA-Public Use
  Company Number: TUK2010A00311

PATIENT
  Age: 75 Year
  Sex: Male

DRUGS (6)
  1. ISOSORBIDE DINITRATE [Suspect]
     Indication: ANGINA PECTORIS
     Dosage: 120 MG ORAL
     Route: 048
     Dates: start: 20050211
  2. NEBIVOLOL HCL [Suspect]
     Indication: HYPERTENSION
     Dosage: 5 MG ORAL
     Route: 048
     Dates: start: 20040413
  3. ATORVASTATION CALCIUM [Concomitant]
  4. LOSARTAN POTASSIUM AND HYDROCHLOROTHIAZIDE [Suspect]
     Indication: HYPERTENSION
     Dosage: 62.5 MG ORAL
     Route: 048
     Dates: start: 20020301
  5. ACTOS [Suspect]
     Indication: TYPE 2 DIABETES MELLITUS
     Dosage: 30 MG (30 MG) ORAL
     Route: 048
     Dates: start: 20081104
  6. AMLODIPINE [Suspect]
     Indication: HYPERTENSION
     Dosage: 5 MG ORAL
     Route: 048
     Dates: start: 20021015

REACTIONS (2)
  - LOSS OF CONSCIOUSNESS [None]
  - ANGINA PECTORIS [None]
